FAERS Safety Report 12555572 (Version 1)
Quarter: 2016Q3

REPORT INFORMATION
  Report Type: Spontaneous
  Country: US (occurrence: None)
  Receive Date: 20160713
  Receipt Date: 20160713
  Transmission Date: 20161109
  Serious: Yes (Disabling, Other)
  Sender: FDA-Public Use
  Company Number: None

PATIENT
  Age: 76 Year
  Sex: Male
  Weight: 108.86 kg

DRUGS (3)
  1. COSTCO MATURE MULTIVITAMIN [Concomitant]
  2. KEPPRA [Suspect]
     Active Substance: LEVETIRACETAM
     Indication: SEIZURE
     Dosage: 60 TABLETS AT BEDTIME
     Route: 048
     Dates: start: 20150625, end: 20151031
  3. BROMINIDINE EYE DROPS [Concomitant]

REACTIONS (4)
  - West Nile viral infection [None]
  - Condition aggravated [None]
  - Nervous system disorder [None]
  - Poliomyelitis [None]

NARRATIVE: CASE EVENT DATE: 20150715
